FAERS Safety Report 21478911 (Version 1)
Quarter: 2022Q4

REPORT INFORMATION
  Report Type: Spontaneous
  Country: US (occurrence: US)
  Receive Date: 20221019
  Receipt Date: 20221019
  Transmission Date: 20230113
  Serious: Yes (Hospitalization, Other)
  Sender: FDA-Public Use
  Company Number: US-BRISTOL-MYERS SQUIBB COMPANY-2022-122114

PATIENT
  Age: 66 Year
  Sex: Male
  Weight: 77.11 kg

DRUGS (5)
  1. NIVOLUMAB [Suspect]
     Active Substance: NIVOLUMAB
     Indication: Rectal cancer
     Route: 065
     Dates: start: 201904
  2. NIVOLUMAB [Suspect]
     Active Substance: NIVOLUMAB
     Dosage: DOSE : 240MG;     FREQ : EVERY (2) WEEKS VIA INFUSION FOR (30) MINUTES
     Route: 065
  3. YERVOY [Suspect]
     Active Substance: IPILIMUMAB
     Indication: Rectal cancer
     Dosage: DOSE : UNAVAILABLE;     FREQ : EVERY (3) WEEKS VIA INFUSION
     Route: 065
     Dates: start: 201904
  4. FENTANYL [Concomitant]
     Active Substance: FENTANYL
     Indication: Product used for unknown indication
     Route: 065
  5. LYRICA [Concomitant]
     Active Substance: PREGABALIN
     Indication: Product used for unknown indication
     Route: 065

REACTIONS (8)
  - Neuropathy peripheral [Unknown]
  - Balance disorder [Unknown]
  - Cerebral disorder [Unknown]
  - Fatigue [Unknown]
  - Somnolence [Unknown]
  - Renal failure [Unknown]
  - Arthritis [Unknown]
  - Thinking abnormal [Unknown]
